FAERS Safety Report 5137158-5 (Version None)
Quarter: 2006Q4

REPORT INFORMATION
  Report Type: 
  Country: None (occurrence: None)
  Receive Date: 20061030
  Receipt Date: 20050902
  Transmission Date: 20070319
  Serious: No
  Sender: FDA-Public Use
  Company Number: US-GLAXOSMITHKLINE-A0572872A

PATIENT
  Age: 53 Year
  Sex: Female

DRUGS (5)
  1. ADVAIR HFA [Suspect]
     Indication: CHRONIC OBSTRUCTIVE PULMONARY DISEASE
     Dosage: 1PUFF TWICE PER DAY
     Route: 055
     Dates: start: 20050601
  2. VASOTEC [Concomitant]
  3. SPIRIVA [Concomitant]
  4. COUMADIN [Concomitant]
  5. OXYGEN [Concomitant]

REACTIONS (4)
  - AGEUSIA [None]
  - ASTHENIA [None]
  - DRUG INEFFECTIVE [None]
  - LETHARGY [None]
